FAERS Safety Report 17462239 (Version 1)
Quarter: 2020Q1

REPORT INFORMATION
  Report Type: Spontaneous
  Country: GB (occurrence: GB)
  Receive Date: 20200226
  Receipt Date: 20200226
  Transmission Date: 20200409
  Serious: Yes (Disabling, Other)
  Sender: FDA-Public Use
  Company Number: GB-AUROBINDO-AUR-APL-2020-009266

PATIENT
  Age: 30 Year
  Sex: Male
  Weight: 101.6 kg

DRUGS (3)
  1. HALOPERIDOL. [Suspect]
     Active Substance: HALOPERIDOL
     Indication: PRODUCT USED FOR UNKNOWN INDICATION
     Dosage: UNK
     Route: 065
  2. CLOZAPINE. [Suspect]
     Active Substance: CLOZAPINE
     Indication: SCHIZOPHRENIA
     Dosage: 700 MILLIGRAM
     Route: 048
     Dates: start: 2000, end: 201908
  3. LAMOTRIGINE. [Suspect]
     Active Substance: LAMOTRIGINE
     Indication: PRODUCT USED FOR UNKNOWN INDICATION
     Dosage: 300 MILLIGRAM, ONCE A DAY
     Route: 065

REACTIONS (19)
  - Fine motor skill dysfunction [Not Recovered/Not Resolved]
  - Hallucinations, mixed [Recovering/Resolving]
  - Thirst decreased [Unknown]
  - Hypotension [Recovered/Resolved]
  - Lower respiratory tract infection [Unknown]
  - Arthritis [Recovering/Resolving]
  - Dissociation [Recovering/Resolving]
  - Drug interaction [Unknown]
  - Gait disturbance [Recovering/Resolving]
  - Withdrawal syndrome [Unknown]
  - Pneumonia [Recovered/Resolved]
  - Abnormal weight gain [Recovered/Resolved with Sequelae]
  - Jaw disorder [Unknown]
  - Psychotic disorder [Recovering/Resolving]
  - Paranoia [Recovering/Resolving]
  - Dyskinesia [Unknown]
  - Borderline personality disorder [Not Recovered/Not Resolved]
  - Decreased appetite [Unknown]
  - Emotional disorder [Unknown]

NARRATIVE: CASE EVENT DATE: 2005
